FAERS Safety Report 6645675-1 (Version None)
Quarter: 2010Q1

REPORT INFORMATION
  Report Type: 
  Country: None (occurrence: None)
  Receive Date: 20100323
  Receipt Date: 20100309
  Transmission Date: 20100710
  Serious: Yes (Other)
  Sender: FDA-Public Use
  Company Number: US-ELI_LILLY_AND_COMPANY-US201003003807

PATIENT
  Age: 65 Year
  Sex: Male

DRUGS (6)
  1. EFFIENT [Suspect]
     Indication: STENT PLACEMENT
     Dosage: UNK, DAILY (1/D)
     Route: 065
     Dates: start: 20100125, end: 20100101
  2. EFFIENT [Suspect]
     Dosage: 10 MG, DAILY (1/D)
     Route: 065
     Dates: start: 20100125, end: 20100101
  3. COREG [Concomitant]
  4. ASPIRIN [Concomitant]
  5. IMDUR [Concomitant]
  6. PROTONIX [Concomitant]
     Dosage: 40 MG, DAILY (1/D)

REACTIONS (1)
  - HAEMOLYTIC ANAEMIA [None]
